FAERS Safety Report 5920345-3 (Version None)
Quarter: 2008Q4

REPORT INFORMATION
  Report Type: 
  Country: None (occurrence: None)
  Receive Date: 20081016
  Receipt Date: 20081007
  Transmission Date: 20090506
  Serious: Yes (Other)
  Sender: FDA-Public Use
  Company Number: PHHY2008BR24033

PATIENT
  Age: 89 Year
  Sex: Female

DRUGS (4)
  1. FORASEQ [Suspect]
     Indication: EMPHYSEMA
     Dosage: 2 CAPSULES, Q12H
  2. CHLORTHALIDONE [Concomitant]
     Indication: HYPERTENSION
     Dosage: 1 DF, EVERY MORNING
  3. LANITOP [Concomitant]
     Indication: HYPERTENSION
  4. SOMALGIN CARDIO [Concomitant]
     Indication: ARRHYTHMIA

REACTIONS (3)
  - BRONCHOSPASM [None]
  - DYSPNOEA [None]
  - EMPHYSEMA [None]
